FAERS Safety Report 7238165-9 (Version None)
Quarter: 2011Q1

REPORT INFORMATION
  Report Type: 
  Country: None (occurrence: None)
  Receive Date: 20110119
  Receipt Date: 20110119
  Transmission Date: 20110831
  Serious: No
  Sender: FDA-Public Use
  Company Number: None

PATIENT
  Age: 50 Year
  Sex: Male
  Weight: 74.3899 kg

DRUGS (1)
  1. ALCOHOL PAD TRIAD ALCOHOL PAD [Suspect]
     Indication: PREOPERATIVE CARE
     Dosage: TOP
     Route: 061
     Dates: start: 20110110, end: 20110110

REACTIONS (4)
  - APPLICATION SITE RASH [None]
  - BURNING SENSATION [None]
  - PRURITUS [None]
  - PRODUCT QUALITY ISSUE [None]
